FAERS Safety Report 15103619 (Version 5)
Quarter: 2018Q3

REPORT INFORMATION
  Report Type: Report from Study
  Country: PL (occurrence: PL)
  Receive Date: 20180703
  Receipt Date: 20180719
  Transmission Date: 20181010
  Serious: Yes (Death, Hospitalization)
  Sender: FDA-Public Use
  Company Number: PL-ROCHE-2103662

PATIENT
  Age: 81 Year
  Sex: Male
  Weight: 72 kg

DRUGS (6)
  1. ACARD [Concomitant]
     Active Substance: ASPIRIN
     Route: 048
     Dates: start: 2008, end: 20180410
  2. ATEZOLIZUMAB. [Suspect]
     Active Substance: ATEZOLIZUMAB
     Indication: NON-SMALL CELL LUNG CANCER METASTATIC
     Dosage: DOSE OF MOST RECENT ATEZOLIZUMAB ADMINISTERED PRIOR TO AE ONSET:  01/MAR/2018
     Route: 042
  3. ROMAZIC [Concomitant]
     Route: 048
  4. BISOCARD [Concomitant]
     Active Substance: BISOPROLOL
     Route: 048
     Dates: start: 2008
  5. AMLOPIN [Concomitant]
     Active Substance: AMLODIPINE BESYLATE
     Route: 048
  6. IPP (PANTOPRAZOL) [Concomitant]
     Route: 048
     Dates: start: 20180328

REACTIONS (1)
  - Myasthenia gravis [Fatal]

NARRATIVE: CASE EVENT DATE: 20180328
